FAERS Safety Report 9578305 (Version 1)
Quarter: 2013Q4

REPORT INFORMATION
  Report Type: Spontaneous
  Country: US (occurrence: US)
  Receive Date: 20131001
  Receipt Date: 20131001
  Transmission Date: 20140711
  Serious: No
  Sender: FDA-Public Use
  Company Number: US-AMGEN-USASP2013012919

PATIENT
  Age: 45 Year
  Sex: Male
  Weight: 95.69 kg

DRUGS (8)
  1. ENBREL [Suspect]
     Indication: RHEUMATOID ARTHRITIS
     Dosage: 50 MG, WEEKLY
     Route: 058
  2. ZOLOFT [Concomitant]
     Dosage: 100 MG, UNK
  3. VITAMIN B12                        /00056201/ [Concomitant]
     Dosage: 100 MUG, UNK
  4. LISINOPRIL [Concomitant]
     Dosage: 30 MG, UNK
  5. VITAMIN B6 [Concomitant]
     Dosage: 250 MG, UNK
  6. CENTRUM                            /02217401/ [Concomitant]
     Dosage: UNK
  7. ALEVE [Concomitant]
     Dosage: 220 MG, UNK
  8. SIMPONI [Concomitant]
     Dosage: 50 MG, UNK

REACTIONS (1)
  - Drug ineffective [Unknown]
